FAERS Safety Report 15818856 (Version 3)
Quarter: 2019Q2

REPORT INFORMATION
  Report Type: Spontaneous
  Country: IE (occurrence: IE)
  Receive Date: 20190113
  Receipt Date: 20190403
  Transmission Date: 20190711
  Serious: Yes (Hospitalization, Other)
  Sender: FDA-Public Use
  Company Number: IE-AMGEN-IRLSP2019005560

PATIENT
  Sex: Female

DRUGS (1)
  1. AIMOVIG [Suspect]
     Active Substance: ERENUMAB-AOOE
     Indication: MIGRAINE
     Dosage: 70 MG, UNK
     Route: 065
     Dates: start: 20181205

REACTIONS (14)
  - Pruritus [Recovering/Resolving]
  - Pyrexia [Recovering/Resolving]
  - Eosinophil count increased [Recovering/Resolving]
  - Nausea [Recovering/Resolving]
  - Chills [Unknown]
  - Vomiting [Recovering/Resolving]
  - Hepatic function abnormal [Recovering/Resolving]
  - Pain [Recovering/Resolving]
  - Malaise [Recovered/Resolved]
  - Shock [Recovering/Resolving]
  - Headache [Recovering/Resolving]
  - Rash generalised [Recovering/Resolving]
  - Dizziness [Recovering/Resolving]
  - Posterior reversible encephalopathy syndrome [Unknown]

NARRATIVE: CASE EVENT DATE: 20181227
